FAERS Safety Report 16507659 (Version 1)
Quarter: 2019Q3

REPORT INFORMATION
  Report Type: Report from Study
  Country: JP (occurrence: JP)
  Receive Date: 20190702
  Receipt Date: 20190702
  Transmission Date: 20191004
  Serious: Yes (Other)
  Sender: FDA-Public Use
  Company Number: JP-CLINIGEN GROUP PLC/ CLINIGEN HEALTHCARE LTD-JP-CLGN-18-00411

PATIENT
  Sex: Female
  Weight: 25 kg

DRUGS (14)
  1. PROEMEND [Concomitant]
     Active Substance: FOSAPREPITANT
     Route: 041
     Dates: start: 20181009, end: 20181009
  2. SAVENE [Suspect]
     Active Substance: DEXRAZOXANE
     Route: 041
     Dates: start: 20181009, end: 20181010
  3. DOXORUBICIN HYDROCHLORIDE. [Concomitant]
     Active Substance: DOXORUBICIN HYDROCHLORIDE
     Indication: PRODUCT USED FOR UNKNOWN INDICATION
     Route: 042
     Dates: start: 20180830, end: 20180831
  4. DOXORUBICIN HYDROCHLORIDE. [Concomitant]
     Active Substance: DOXORUBICIN HYDROCHLORIDE
     Route: 042
     Dates: start: 20181009, end: 20181010
  5. GRANISETRON [Concomitant]
     Active Substance: GRANISETRON
     Route: 042
     Dates: start: 20181010, end: 20181011
  6. SAVENE [Suspect]
     Active Substance: DEXRAZOXANE
     Indication: CHEMOTHERAPY CARDIOTOXICITY ATTENUATION
     Route: 041
     Dates: start: 20180830, end: 20180831
  7. PROEMEND [Concomitant]
     Active Substance: FOSAPREPITANT
     Indication: PROPHYLAXIS OF NAUSEA AND VOMITING
     Route: 041
     Dates: start: 20180830, end: 20180830
  8. GRANISETRON [Concomitant]
     Active Substance: GRANISETRON
     Indication: PROPHYLAXIS OF NAUSEA AND VOMITING
     Route: 042
     Dates: start: 20180831, end: 20180901
  9. DECADRON [Concomitant]
     Active Substance: DEXAMETHASONE
     Indication: PROPHYLAXIS OF NAUSEA AND VOMITING
     Dates: start: 20180830, end: 20180831
  10. DECADRON [Concomitant]
     Active Substance: DEXAMETHASONE
     Dates: start: 20181009, end: 20181010
  11. ALOXI [Concomitant]
     Active Substance: PALONOSETRON HYDROCHLORIDE
     Route: 042
     Dates: start: 20181009, end: 20181009
  12. SEISHOKU [Concomitant]
     Active Substance: SODIUM CHLORIDE
     Route: 041
     Dates: start: 20181009, end: 20181010
  13. ALOXI [Concomitant]
     Active Substance: PALONOSETRON HYDROCHLORIDE
     Indication: PROPHYLAXIS OF NAUSEA AND VOMITING
     Route: 042
     Dates: start: 20180830, end: 20180830
  14. SEISHOKU [Concomitant]
     Active Substance: SODIUM CHLORIDE
     Indication: MEDICATION DILUTION
     Route: 041
     Dates: start: 20180830, end: 20180831

REACTIONS (1)
  - Off label use [Unknown]
